FAERS Safety Report 7327914-7 (Version None)
Quarter: 2011Q1

REPORT INFORMATION
  Report Type: 
  Country: None (occurrence: None)
  Receive Date: 20110222
  Receipt Date: 20110208
  Transmission Date: 20110831
  Serious: Yes (Death, Other)
  Sender: FDA-Public Use
  Company Number: MC201100054

PATIENT

DRUGS (1)
  1. CLEVIPREX [Suspect]

REACTIONS (3)
  - MENTAL STATUS CHANGES [None]
  - HYPOTENSION [None]
  - ILEUS [None]
